FAERS Safety Report 20335720 (Version 1)
Quarter: 2022Q1

REPORT INFORMATION
  Report Type: Spontaneous
  Country: US (occurrence: None)
  Receive Date: 20220113
  Receipt Date: 20220113
  Transmission Date: 20220423
  Serious: Yes (Hospitalization)
  Sender: FDA-Public Use
  Company Number: None

PATIENT
  Age: 8 Year
  Sex: Male
  Weight: 33.4 kg

DRUGS (18)
  1. REMDESIVIR [Suspect]
     Active Substance: REMDESIVIR
     Indication: COVID-19
     Dosage: OTHER FREQUENCY : ONCE /LOADING DOSE;?
     Route: 042
     Dates: start: 20220104, end: 20220105
  2. REMDESIVIR [Suspect]
     Active Substance: REMDESIVIR
     Indication: COVID-19
     Dosage: FREQUENCY : DAILY;?
     Route: 042
     Dates: start: 20220106, end: 20220108
  3. AZITHROMYCIN [Concomitant]
     Active Substance: AZITHROMYCIN
  4. CEFTRIAXONE [Concomitant]
     Active Substance: CEFTRIAXONE
     Dates: start: 20220104, end: 20220108
  5. CEFTRIAXONE [Concomitant]
     Active Substance: CEFTRIAXONE
     Dates: start: 20220112
  6. AZITHROMYCIN [Concomitant]
     Active Substance: AZITHROMYCIN
     Dates: start: 20220104, end: 20220104
  7. HYDROXYUREA [Concomitant]
     Active Substance: HYDROXYUREA
     Dates: start: 20220105
  8. Lidociane 1% [Concomitant]
     Dates: start: 20220104
  9. MORPHINE [Concomitant]
     Active Substance: MORPHINE
     Dates: start: 20220112
  10. ACETAMINOPHEN [Concomitant]
     Active Substance: ACETAMINOPHEN
     Dates: start: 20220104
  11. KETOROLAC [Concomitant]
     Active Substance: KETOROLAC TROMETHAMINE
     Dates: start: 20220112
  12. IBUPROFEN [Concomitant]
     Active Substance: IBUPROFEN
     Dates: start: 20220104, end: 20220105
  13. ENOXAPARIN [Concomitant]
     Active Substance: ENOXAPARIN
     Dates: start: 20220105, end: 20220108
  14. CHOLECALCIFEROL [Concomitant]
     Active Substance: CHOLECALCIFEROL
     Dates: start: 20220105, end: 20220108
  15. FOLIC ACID [Concomitant]
     Active Substance: FOLIC ACID
     Dates: start: 20220105, end: 20220108
  16. D5NS W/K20 [Concomitant]
     Dates: start: 20220104, end: 20220108
  17. D5NS [Concomitant]
  18. NS for Bolus [Concomitant]
     Dates: start: 20220112

REACTIONS (3)
  - Back pain [None]
  - Chest pain [None]
  - Drug ineffective [None]

NARRATIVE: CASE EVENT DATE: 20220112
